FAERS Safety Report 10238083 (Version 3)
Quarter: 2015Q4

REPORT INFORMATION
  Report Type: Spontaneous
  Country: US (occurrence: US)
  Receive Date: 20140616
  Receipt Date: 20151005
  Transmission Date: 20160304
  Serious: Yes (Other)
  Sender: FDA-Public Use
  Company Number: US-AMGEN-USASP2014043306

PATIENT
  Age: 85 Year
  Sex: Male

DRUGS (1)
  1. PROLIA [Suspect]
     Active Substance: DENOSUMAB
     Indication: PRODUCT USED FOR UNKNOWN INDICATION
     Dosage: UNK
     Route: 065

REACTIONS (8)
  - Spinal pain [Unknown]
  - Back disorder [Unknown]
  - Mobility decreased [Unknown]
  - Musculoskeletal disorder [Unknown]
  - No therapeutic response [Unknown]
  - Spinal deformity [Unknown]
  - Gait disturbance [Unknown]
  - Hip fracture [Unknown]

NARRATIVE: CASE EVENT DATE: 2013
